FAERS Safety Report 25457307 (Version 1)
Quarter: 2025Q2

REPORT INFORMATION
  Report Type: Report from Study
  Country: US (occurrence: US)
  Receive Date: 20250619
  Receipt Date: 20250619
  Transmission Date: 20250716
  Serious: Yes (Other)
  Sender: UCB
  Company Number: US-UCBSA-2025037153

PATIENT

DRUGS (2)
  1. LEVETIRACETAM [Suspect]
     Active Substance: LEVETIRACETAM
     Indication: Agitation
     Dosage: 500 MILLIGRAM, 2X/DAY (BID)
  2. LEVETIRACETAM [Suspect]
     Active Substance: LEVETIRACETAM
     Indication: Off label use

REACTIONS (15)
  - Seizure [Unknown]
  - Lethargy [Unknown]
  - Depression [Unknown]
  - Agitation [Unknown]
  - Dizziness [Unknown]
  - Decreased appetite [Unknown]
  - Diarrhoea [Unknown]
  - Insomnia [Unknown]
  - Abnormal dreams [Unknown]
  - Aggression [Unknown]
  - Fatigue [Unknown]
  - Irritability [Unknown]
  - Cognitive disorder [Unknown]
  - Off label use [Unknown]
  - Refusal of treatment by patient [Unknown]
